FAERS Safety Report 7009657-2 (Version None)
Quarter: 2010Q3

REPORT INFORMATION
  Report Type: 
  Country: None (occurrence: None)
  Receive Date: 20100903
  Receipt Date: 20100510
  Transmission Date: 20110219
  Serious: No
  Sender: FDA-Public Use
  Company Number: 163-22393-10050788

PATIENT
  Sex: Male

DRUGS (1)
  1. ISTODAX [Suspect]
     Indication: MYCOSIS FUNGOIDES
     Dosage: INJECTION

REACTIONS (3)
  - FATIGUE [None]
  - GASTRITIS [None]
  - NAUSEA [None]
